FAERS Safety Report 4771487-X (Version None)
Quarter: 2005Q3

REPORT INFORMATION
  Report Type: 
  Country: None (occurrence: None)
  Receive Date: 20050914
  Receipt Date: 20050914
  Transmission Date: 20060218
  Serious: Yes (Other)
  Sender: FDA-Public Use
  Company Number: None

PATIENT
  Age: 22 Year
  Sex: Female
  Weight: 54 kg

DRUGS (4)
  1. INFLIXIMAB (REMICADE) [Suspect]
     Indication: CROHN'S DISEASE
     Dosage: 275 MG IN 250 ML NS [ALSO RECEIVED 3 -YEARS AGO]
     Dates: start: 20050812
  2. INFLIXIMAB (REMICADE) [Suspect]
     Indication: CROHN'S DISEASE
     Dosage: 275 MG IN 250 ML NS [ALSO RECEIVED 3 -YEARS AGO]
     Dates: start: 20050913
  3. ASACOL [Concomitant]
  4. BIRTH CONTROL PILLS [Concomitant]

REACTIONS (6)
  - FLUSHING [None]
  - INFUSION RELATED REACTION [None]
  - MYALGIA [None]
  - RASH [None]
  - RESPIRATORY DISTRESS [None]
  - THROAT TIGHTNESS [None]
